FAERS Safety Report 18281320 (Version 1)
Quarter: 2020Q3

REPORT INFORMATION
  Report Type: Spontaneous
  Country: FR (occurrence: FR)
  Receive Date: 20200918
  Receipt Date: 20200918
  Transmission Date: 20201103
  Serious: Yes (Hospitalization)
  Sender: FDA-Public Use
  Company Number: FR-TEVA-2020-FR-1827857

PATIENT
  Age: 41 Year
  Sex: Female
  Weight: 51 kg

DRUGS (4)
  1. LARGACTIL 25 MG, COMPRIME PELLICULE SECABLE [Suspect]
     Active Substance: CHLORPROMAZINE HYDROCHLORIDE
     Indication: BIPOLAR DISORDER
     Dosage: UNIT DOSE:1DOSAGEFORM
     Route: 048
     Dates: start: 20200806, end: 20200817
  2. OLANZAPINE. [Suspect]
     Active Substance: OLANZAPINE
     Indication: BIPOLAR DISORDER
     Dosage: 30 MILLIGRAM DAILY;
     Route: 048
     Dates: start: 20200710
  3. CARBAMAZEPINE. [Suspect]
     Active Substance: CARBAMAZEPINE
     Indication: BIPOLAR DISORDER
     Dosage: 600 MILLIGRAM DAILY;
     Route: 048
     Dates: start: 20200721
  4. TERALITHE [Suspect]
     Active Substance: LITHIUM CARBONATE
     Indication: BIPOLAR DISORDER
     Dosage: 2 DOSAGE FORMS DAILY; 800 MG / DAY
     Route: 048
     Dates: start: 20200710

REACTIONS (3)
  - Pyrexia [Not Recovered/Not Resolved]
  - Rash [Not Recovered/Not Resolved]
  - Hepatocellular injury [Not Recovered/Not Resolved]

NARRATIVE: CASE EVENT DATE: 20200816
